FAERS Safety Report 8727261 (Version 2)
Quarter: 2013Q2

REPORT INFORMATION
  Report Type: Spontaneous
  Country: US (occurrence: None)
  Receive Date: 20120423
  Receipt Date: 20121227
  Transmission Date: 20140414
  Serious: Yes (Hospitalization)
  Sender: FDA-Public Use
  Company Number: PHEH2010US01041

PATIENT
  Age: 26 Year
  Sex: Female
  Weight: 74.8 kg

DRUGS (1)
  1. EXJADE [Suspect]
     Indication: SICKLE CELL ANAEMIA
     Dosage: 1500 MG, UNK, ORAL
     Route: 048
     Dates: start: 20060818

REACTIONS (1)
  - SICKLE CELL ANAEMIA WITH CRISIS [None]
